FAERS Safety Report 5323962-7 (Version None)
Quarter: 2007Q2

REPORT INFORMATION
  Report Type: 
  Country: None (occurrence: None)
  Receive Date: 20070509
  Receipt Date: 20070509
  Transmission Date: 20071010
  Serious: Yes (Life-Threatening, Disabling)
  Sender: FDA-Public Use
  Company Number: None

PATIENT
  Age: 53 Year
  Sex: Female
  Weight: 61.2356 kg

DRUGS (1)
  1. BONIVA [Suspect]
     Indication: OSTEOPOROSIS
     Dosage: 1 PILL MONTHLY
     Dates: start: 20070429, end: 20070429

REACTIONS (4)
  - DERMATITIS ALLERGIC [None]
  - SKIN EXFOLIATION [None]
  - SWELLING FACE [None]
  - URTICARIA [None]
